FAERS Safety Report 9373955 (Version 1)
Quarter: 2013Q2

REPORT INFORMATION
  Report Type: Spontaneous
  Country: US (occurrence: None)
  Receive Date: 20130627
  Receipt Date: 20130627
  Transmission Date: 20140414
  Serious: Yes (Death)
  Sender: FDA-Public Use
  Company Number: None

PATIENT
  Age: 26 None
  Sex: 0

DRUGS (1)
  1. EXJADE 250MG NOVARTIS [Suspect]
     Indication: SICKLE CELL ANAEMIA
     Dosage: 1250MG DAILY PO
     Route: 048
     Dates: start: 20121004

REACTIONS (3)
  - Sepsis [None]
  - Disease complication [None]
  - Sickle cell anaemia [None]
